FAERS Safety Report 5722234-6 (Version None)
Quarter: 2008Q2

REPORT INFORMATION
  Report Type: 
  Country: None (occurrence: None)
  Receive Date: 20080425
  Receipt Date: 20080414
  Transmission Date: 20081010
  Serious: Yes (Other)
  Sender: FDA-Public Use
  Company Number: S08-USA-00478-01

PATIENT
  Age: 56 Year
  Sex: Female
  Weight: 67.586 kg

DRUGS (7)
  1. CELEXA [Suspect]
     Indication: DEPRESSION
     Dosage: 20 MG QD PO
     Route: 048
     Dates: start: 20070820, end: 20071019
  2. EFFEXOR [Suspect]
     Indication: DEPRESSION
     Dosage: 20 MG QD PO
     Route: 048
     Dates: end: 20071019
  3. PERCOCET [Concomitant]
  4. AVAPRO [Concomitant]
  5. PROTONIX [Concomitant]
  6. OXYCONTIN (OXYCDONE HYDROCHLORIDE) [Concomitant]
  7. PREMPRO [Concomitant]

REACTIONS (12)
  - ANGER [None]
  - ANOREXIA [None]
  - ANXIETY [None]
  - DRUG INEFFECTIVE [None]
  - DRUG INTERACTION [None]
  - HEADACHE [None]
  - HOMICIDAL IDEATION [None]
  - MALAISE [None]
  - PALPITATIONS [None]
  - SUICIDAL IDEATION [None]
  - TEARFULNESS [None]
  - TREMOR [None]
